FAERS Safety Report 19089136 (Version 1)
Quarter: 2021Q2

REPORT INFORMATION
  Report Type: Spontaneous
  Country: US (occurrence: US)
  Receive Date: 20210403
  Receipt Date: 20210403
  Transmission Date: 20210717
  Serious: Yes (Death, Life-Threatening, Hospitalization, Other)
  Sender: FDA-Public Use
  Company Number: US-UNITED THERAPEUTICS-UNT-2021-005715

PATIENT
  Age: 33 Year
  Sex: Female

DRUGS (1)
  1. TYVASO [Suspect]
     Active Substance: TREPROSTINIL
     Indication: PULMONARY ARTERIAL HYPERTENSION
     Dosage: UNK

REACTIONS (17)
  - Right ventricular dilatation [Unknown]
  - Brain compression [Unknown]
  - Pulmonary arterial hypertension [Unknown]
  - Maternal exposure during pregnancy [Unknown]
  - Brain herniation [Unknown]
  - Maternal exposure during breast feeding [Unknown]
  - Shock [Unknown]
  - Brain oedema [Unknown]
  - Thrombocytopenia [Not Recovered/Not Resolved]
  - Uterine haemorrhage [Unknown]
  - Premature delivery [Unknown]
  - Brain death [Fatal]
  - Renal failure [Unknown]
  - Cardiac failure [Unknown]
  - Respiratory distress [Unknown]
  - Subarachnoid haemorrhage [Unknown]
  - Cerebral haemorrhage [Unknown]
